FAERS Safety Report 11630115 (Version 1)
Quarter: 2015Q4

REPORT INFORMATION
  Report Type: Spontaneous
  Country: US (occurrence: US)
  Receive Date: 20151014
  Receipt Date: 20151014
  Transmission Date: 20160304
  Serious: No
  Sender: FDA-Public Use
  Company Number: US-INDIVIOR-RB-080086-2015

PATIENT
  Age: 30 Year
  Sex: Male

DRUGS (7)
  1. XANAX [Concomitant]
     Active Substance: ALPRAZOLAM
     Indication: INSOMNIA
     Dosage: UNKNOWN DOSE, DAILY
     Route: 048
  2. SUBOXONE [Suspect]
     Active Substance: BUPRENORPHINE HYDROCHLORIDE\NALOXONE HYDROCHLORIDE
     Indication: DRUG DEPENDENCE
     Dosage: 12 MG, DAILY FOR ABOUT 3 MONTHS
     Route: 060
     Dates: start: 2005, end: 2005
  3. SUBOXONE [Suspect]
     Active Substance: BUPRENORPHINE HYDROCHLORIDE\NALOXONE HYDROCHLORIDE
     Dosage: VARIOUS TAPERING DOSES FOR ABOUT 4 MONTHS
     Route: 060
     Dates: start: 201412, end: 201503
  4. SUBOXONE [Suspect]
     Active Substance: BUPRENORPHINE HYDROCHLORIDE\NALOXONE HYDROCHLORIDE
     Indication: DRUG DEPENDENCE
     Dosage: 8 MG DAILY
     Route: 060
     Dates: end: 201412
  5. SUBOXONE [Suspect]
     Active Substance: BUPRENORPHINE HYDROCHLORIDE\NALOXONE HYDROCHLORIDE
     Dosage: 8 MG, QD
     Route: 060
     Dates: start: 2005
  6. BUPRENORPHINE/NALOXONE GENERIC [Suspect]
     Active Substance: BUPRENORPHINE\NALOXONE
     Indication: DRUG DEPENDENCE
     Dosage: VARIOUS PIECES OF TABLET, SOMETIMES TWICE A DAY
     Route: 060
     Dates: start: 201503
  7. ALCOHOL. [Suspect]
     Active Substance: ALCOHOL
     Indication: ALCOHOL USE
     Dosage: 1 DRINK, OCCASIONALLY
     Route: 048

REACTIONS (19)
  - Abnormal behaviour [Not Recovered/Not Resolved]
  - Depression [Not Recovered/Not Resolved]
  - Unemployment [Recovered/Resolved]
  - Theft [Recovered/Resolved]
  - Intentional product misuse [Not Recovered/Not Resolved]
  - Alcohol abuse [Not Recovered/Not Resolved]
  - Product preparation error [Not Recovered/Not Resolved]
  - Laziness [Not Recovered/Not Resolved]
  - Vomiting [Not Recovered/Not Resolved]
  - Imprisonment [Recovered/Resolved]
  - Unresponsive to stimuli [Not Recovered/Not Resolved]
  - Panic attack [Not Recovered/Not Resolved]
  - Mental impairment [Not Recovered/Not Resolved]
  - Drug withdrawal syndrome [Not Recovered/Not Resolved]
  - Substance abuse [Not Recovered/Not Resolved]
  - Ejaculation failure [Not Recovered/Not Resolved]
  - Malaise [Not Recovered/Not Resolved]
  - Intentional underdose [Not Recovered/Not Resolved]
  - Therapy cessation [Recovered/Resolved]

NARRATIVE: CASE EVENT DATE: 2005
